FAERS Safety Report 7038371-2 (Version None)
Quarter: 2010Q4

REPORT INFORMATION
  Report Type: 
  Country: None (occurrence: None)
  Receive Date: 20101011
  Receipt Date: 20091130
  Transmission Date: 20110411
  Serious: No
  Sender: FDA-Public Use
  Company Number: US-PFIZER INC-2006113366

PATIENT
  Sex: Female
  Weight: 58.97 kg

DRUGS (3)
  1. NEURONTIN [Suspect]
     Indication: POST HERPETIC NEURALGIA
     Dosage: 100MG TWO TABLETS EVERY 4 HOURS
  2. VITAMIN D [Concomitant]
     Dosage: UNK
  3. DETROL [Concomitant]
     Dosage: UNK

REACTIONS (2)
  - DRUG INEFFECTIVE [None]
  - HEADACHE [None]
